FAERS Safety Report 21905178 (Version 1)
Quarter: 2023Q1

REPORT INFORMATION
  Report Type: Spontaneous
  Country: US (occurrence: None)
  Receive Date: 20230123
  Receipt Date: 20230123
  Transmission Date: 20230418
  Serious: Yes (Hospitalization)
  Sender: FDA-Public Use
  Company Number: None

PATIENT
  Age: 69 Year
  Sex: Male
  Weight: 106 kg

DRUGS (6)
  1. ETOPOSIDE [Suspect]
     Active Substance: ETOPOSIDE
     Indication: Small cell lung cancer
     Route: 041
     Dates: start: 20221201, end: 20221227
  2. DEXAMETHASONE [Concomitant]
     Active Substance: DEXAMETHASONE
  3. ONDANSETRON [Concomitant]
     Active Substance: ONDANSETRON
  4. APREPITANT [Concomitant]
     Active Substance: APREPITANT
  5. CARBOPLATIN [Concomitant]
     Active Substance: CARBOPLATIN
  6. ATEZOLIZUMAB [Concomitant]
     Active Substance: ATEZOLIZUMAB

REACTIONS (5)
  - Anaphylactic reaction [None]
  - Unresponsive to stimuli [None]
  - Respiratory arrest [None]
  - Pulse absent [None]
  - Pulmonary embolism [None]
